FAERS Safety Report 5049272-3 (Version None)
Quarter: 2006Q2

REPORT INFORMATION
  Report Type: 
  Country: None (occurrence: None)
  Receive Date: 20060613
  Receipt Date: 20060410
  Transmission Date: 20061013
  Serious: No
  Sender: FDA-Public Use
  Company Number: 2006-00816

PATIENT
  Age: 69 Year
  Sex: Female
  Weight: 62.6 kg

DRUGS (3)
  1. VELCADE [Suspect]
     Indication: NON-SMALL CELL LUNG CANCER
     Route: 065
  2. ATENOLOL [Concomitant]
  3. PREMARIN [Concomitant]

REACTIONS (1)
  - NEUROPATHY PERIPHERAL [None]
